FAERS Safety Report 9686842 (Version 1)
Quarter: 2013Q4

REPORT INFORMATION
  Report Type: Spontaneous
  Country: IT (occurrence: IT)
  Receive Date: 20131113
  Receipt Date: 20131113
  Transmission Date: 20140711
  Serious: Yes (Other)
  Sender: FDA-Public Use
  Company Number: IT-PFIZER INC-2013323307

PATIENT
  Age: 22 Year
  Sex: Male

DRUGS (3)
  1. XANAX [Suspect]
     Dosage: 50 GTT, TOTAL
     Route: 048
     Dates: start: 20130901, end: 20130901
  2. ANTABUSE [Suspect]
     Indication: ALCOHOLISM
     Dosage: 800 MG, DAILY
     Route: 048
     Dates: start: 20130701
  3. CIPRALEX [Suspect]
     Indication: DEPRESSION
     Dosage: 10 MG, DAILY
     Route: 048
     Dates: start: 20130701

REACTIONS (1)
  - Drug abuse [Recovering/Resolving]
